FAERS Safety Report 5928937-2 (Version None)
Quarter: 2008Q4

REPORT INFORMATION
  Report Type: 
  Country: None (occurrence: None)
  Receive Date: 20081020
  Receipt Date: 20051220
  Transmission Date: 20090506
  Serious: Yes (Life-Threatening, Hospitalization)
  Sender: FDA-Public Use
  Company Number: 2005-01110FE

PATIENT
  Age: 46 Year
  Sex: Female

DRUGS (2)
  1. MENOTROPINS [Suspect]
     Indication: IN VITRO FERTILISATION
     Dosage: 150 IU SC
     Route: 058
     Dates: start: 20050924, end: 20050930
  2. FOLLITROPIN ALFA [Concomitant]

REACTIONS (1)
  - MALIGNANT MELANOMA STAGE II [None]
